FAERS Safety Report 9677630 (Version 1)
Quarter: 2013Q4

REPORT INFORMATION
  Report Type: Spontaneous
  Country: GB (occurrence: GB)
  Receive Date: 20131108
  Receipt Date: 20131108
  Transmission Date: 20140711
  Serious: Yes (Hospitalization)
  Sender: FDA-Public Use
  Company Number: GB-NOVOPROD-391071

PATIENT
  Sex: Female

DRUGS (4)
  1. NOVORAPID [Suspect]
     Indication: TYPE 1 DIABETES MELLITUS
     Dosage: 1:1
  2. NOVORAPID [Suspect]
     Dosage: 2 UNITS: 10 G ( 2:1)
  3. LANTUS [Concomitant]
     Indication: TYPE 1 DIABETES MELLITUS
     Dosage: 6 U, UNK
  4. LANTUS [Concomitant]
     Dosage: 9 U, UNK

REACTIONS (3)
  - Infection [Unknown]
  - Jaundice [Unknown]
  - Hypoglycaemia [Unknown]
